FAERS Safety Report 9776173 (Version 2)
Quarter: 2013Q4

REPORT INFORMATION
  Report Type: Report from Study
  Country: JP (occurrence: JP)
  Receive Date: 20131220
  Receipt Date: 20131220
  Transmission Date: 20140711
  Serious: Yes (Hospitalization, Other)
  Sender: FDA-Public Use
  Company Number: JP-OTSUKA-02100-JPN-06-0372

PATIENT
  Age: 77 Year
  Sex: Female

DRUGS (8)
  1. PLETAAL [Suspect]
     Indication: LACUNAR INFARCTION
     Dosage: 100 MG, BID
     Route: 048
     Dates: start: 20040518, end: 20051117
  2. BAYASPIRIN [Suspect]
     Route: 048
     Dates: start: 20040907, end: 20051117
  3. TERNELIN [Concomitant]
     Dosage: 3 MG, QD
     Route: 048
     Dates: start: 20040420, end: 20040815
  4. TERNELIN [Concomitant]
     Dosage: 2 MG, QD
     Route: 048
     Dates: start: 20040816, end: 20051220
  5. LOXONIN [Concomitant]
     Route: 048
     Dates: start: 20040420, end: 20040815
  6. LOXONIN [Concomitant]
     Route: 048
     Dates: start: 20040816, end: 20051117
  7. MUCOSTA [Concomitant]
     Route: 048
     Dates: start: 20040420, end: 20040815
  8. MUCOSTA [Concomitant]
     Route: 048
     Dates: start: 20040816, end: 20051220

REACTIONS (3)
  - Gastric ulcer haemorrhage [Recovered/Resolved]
  - Anaemia [Unknown]
  - Mallory-Weiss syndrome [Unknown]
